FAERS Safety Report 5892304-0 (Version None)
Quarter: 2008Q3

REPORT INFORMATION
  Report Type: 
  Country: None (occurrence: None)
  Receive Date: 20080919
  Receipt Date: 20080908
  Transmission Date: 20090109
  Serious: Yes (Death)
  Sender: FDA-Public Use
  Company Number: US024572

PATIENT
  Sex: Female

DRUGS (2)
  1. ACTIQ [Suspect]
     Indication: MIGRAINE
     Dosage: 200 UG QWKLY BUCCAL
     Route: 002
  2. ACTIQ [Suspect]
     Indication: MIGRAINE
     Dosage: 800 UG QWKLY BUCCAL
     Route: 002

REACTIONS (2)
  - CONVULSION [None]
  - DRUG TOXICITY [None]
